FAERS Safety Report 17883416 (Version 5)
Quarter: 2023Q1

REPORT INFORMATION
  Report Type: Report from Study
  Country: CA (occurrence: None)
  Receive Date: 20200611
  Receipt Date: 20230208
  Transmission Date: 20230417
  Serious: Yes (Hospitalization, Other)
  Sender: FDA-Public Use
  Company Number: CA-ROCHE-2616229

PATIENT
  Age: 62 Year
  Sex: Female
  Weight: 79.7 kg

DRUGS (5)
  1. BEVACIZUMAB [Suspect]
     Active Substance: BEVACIZUMAB
     Indication: Ovarian epithelial cancer
     Dosage: TOTAL DOSE ADMINISTERED THIS COURSE: 795 MG?DATE OF LAST DOSE ADMINISTERED: 08/JAN/2020
     Route: 042
     Dates: start: 20200302
  2. BEVACIZUMAB [Suspect]
     Active Substance: BEVACIZUMAB
     Dosage: TOTAL DOSE ADMINISTERED THIS COURSE:795 MG
     Route: 042
     Dates: start: 20200108
  3. PACLITAXEL [Suspect]
     Active Substance: PACLITAXEL
     Indication: Ovarian epithelial cancer
     Dosage: TOTAL DOSE ADMINISTERED THIS COURSE: 296 MG?DATE OF LAST DOSE ADMINISTERED: 15/JAN/2020
     Route: 042
     Dates: start: 20200108
  4. PACLITAXEL [Suspect]
     Active Substance: PACLITAXEL
     Dosage: COURSE 3 DOSEAMOUNT:360,UNIT:MG
     Route: 042
     Dates: start: 20200304
  5. TYLENOL [Concomitant]
     Active Substance: ACETAMINOPHEN

REACTIONS (4)
  - Anaemia [Unknown]
  - Abdominal pain [Not Recovered/Not Resolved]
  - White blood cell count decreased [Unknown]
  - Neutrophil count decreased [Unknown]

NARRATIVE: CASE EVENT DATE: 20200119
